FAERS Safety Report 9292743 (Version 2)
Quarter: 2013Q2

REPORT INFORMATION
  Report Type: Spontaneous
  Country: BE (occurrence: BE)
  Receive Date: 20130516
  Receipt Date: 20130520
  Transmission Date: 20140414
  Serious: Yes (Hospitalization, Other)
  Sender: FDA-Public Use
  Company Number: BE-JNJFOC-20130504652

PATIENT
  Age: 58 Year
  Sex: Female

DRUGS (8)
  1. XARELTO [Suspect]
     Indication: CEREBROVASCULAR ACCIDENT PROPHYLAXIS
     Route: 048
  2. XARELTO [Suspect]
     Indication: ATRIAL FIBRILLATION
     Route: 048
  3. EMCONCOR [Concomitant]
     Route: 065
  4. CORDARONE [Concomitant]
     Route: 065
  5. COVERSYL [Concomitant]
     Route: 065
  6. BURINEX [Concomitant]
     Route: 065
  7. VITAMIN D [Concomitant]
     Route: 065
  8. CALCIUM [Concomitant]
     Route: 065

REACTIONS (2)
  - Ischaemic stroke [Recovered/Resolved]
  - Drug administration error [Unknown]
